FAERS Safety Report 25458943 (Version 1)
Quarter: 2025Q2

REPORT INFORMATION
  Report Type: Report from Study
  Country: US (occurrence: US)
  Receive Date: 20250620
  Receipt Date: 20250620
  Transmission Date: 20250716
  Serious: Yes (Other)
  Sender: ABBVIE
  Company Number: US-ABBVIE-6331893

PATIENT
  Age: 49 Year
  Sex: Female

DRUGS (1)
  1. SKYRIZI [Suspect]
     Active Substance: RISANKIZUMAB-RZAA
     Indication: Psoriasis
     Route: 058
     Dates: end: 202004

REACTIONS (4)
  - Deep vein thrombosis [Unknown]
  - Pain of skin [Unknown]
  - Skin atrophy [Unknown]
  - Psoriasis [Unknown]

NARRATIVE: CASE EVENT DATE: 20200401
